FAERS Safety Report 7393023-4 (Version None)
Quarter: 2011Q2

REPORT INFORMATION
  Report Type: 
  Country: None (occurrence: None)
  Receive Date: 20110404
  Receipt Date: 20110330
  Transmission Date: 20111010
  Serious: Yes (Hospitalization)
  Sender: FDA-Public Use
  Company Number: FI-ABBOTT-11P-055-0715458-00

PATIENT
  Age: 58 Year
  Sex: Male

DRUGS (5)
  1. HUMIRA [Suspect]
     Dates: start: 20110320
  2. TREXAN [Concomitant]
     Indication: PRODUCT USED FOR UNKNOWN INDICATION
  3. HUMIRA [Suspect]
     Indication: MUSCULOSKELETAL PAIN
     Dates: end: 20101203
  4. HUMIRA [Suspect]
     Indication: PSORIASIS
  5. CORTISONE [Concomitant]
     Indication: PRODUCT USED FOR UNKNOWN INDICATION
     Dosage: 1/2 TABLET (0.25MG) EVERY EVENING

REACTIONS (3)
  - PYREXIA [None]
  - C-REACTIVE PROTEIN INCREASED [None]
  - JOINT SWELLING [None]
